FAERS Safety Report 17575722 (Version 1)
Quarter: 2020Q1

REPORT INFORMATION
  Report Type: Spontaneous
  Country: US (occurrence: US)
  Receive Date: 20200317
  Receipt Date: 20200317
  Transmission Date: 20200409
  Serious: Yes (Life-Threatening, Other)
  Sender: FDA-Public Use
  Company Number: None

PATIENT
  Age: 72 Year
  Sex: Female
  Weight: 122.47 kg

DRUGS (10)
  1. SPIROLACTONE [Concomitant]
     Active Substance: SPIRONOLACTONE
  2. ROLLATOR (WALKER) [Concomitant]
  3. TUMS [Concomitant]
     Active Substance: CALCIUM CARBONATE
  4. IBUPROPHEN [Concomitant]
     Active Substance: IBUPROFEN
  5. ABILIFY [Suspect]
     Active Substance: ARIPIPRAZOLE
     Indication: SCHIZOPHRENIA
     Dosage: ?          QUANTITY:1 DF DOSAGE FORM;?
     Route: 048
  6. VITAMINS-MINERAL [Concomitant]
  7. HYDROCHLOTHAZIDE [Concomitant]
  8. NITROSTAT [Concomitant]
     Active Substance: NITROGLYCERIN
  9. DULCOLAX NOS [Concomitant]
     Active Substance: BISACODYL OR DOCUSATE SODIUM
  10. ASPRIN [Concomitant]
     Active Substance: ASPIRIN

REACTIONS (4)
  - Depressed level of consciousness [None]
  - Gastrointestinal disorder [None]
  - Pancreatic disorder [None]
  - Weight increased [None]
